FAERS Safety Report 5099463-0 (Version None)
Quarter: 2006Q3

REPORT INFORMATION
  Report Type: 
  Country: None (occurrence: None)
  Receive Date: 20060906
  Receipt Date: 20060828
  Transmission Date: 20061208
  Serious: Yes (Other)
  Sender: FDA-Public Use
  Company Number: 2006105024

PATIENT
  Age: 70 Year
  Sex: Female

DRUGS (3)
  1. MEDROXYPROGESTERONE ACETATE [Suspect]
     Indication: HORMONE REPLACEMENT THERAPY
     Dosage: ORAL
     Route: 048
     Dates: start: 19660101, end: 20040101
  2. DEPO-ESTRADIOL [Suspect]
     Indication: HORMONE REPLACEMENT THERAPY
     Dosage: INTRAMUSCULAR
     Route: 030
     Dates: start: 19660101, end: 20040101
  3. PREMARIN [Suspect]
     Indication: HORMONE REPLACEMENT THERAPY
     Dates: start: 19660101, end: 20040101

REACTIONS (2)
  - BREAST CANCER FEMALE [None]
  - MYOCARDIAL INFARCTION [None]
